FAERS Safety Report 23781243 (Version 1)
Quarter: 2024Q2

REPORT INFORMATION
  Report Type: Other
  Country: US (occurrence: None)
  Receive Date: 20240425
  Receipt Date: 20240425
  Transmission Date: 20240716
  Serious: Yes (Hospitalization)
  Sender: FDA-Public Use
  Company Number: US-ROCHE-3469526

PATIENT
  Age: 77 Year
  Sex: Female
  Weight: 51.302 kg

DRUGS (2)
  1. ACTEMRA [Suspect]
     Active Substance: TOCILIZUMAB
     Indication: Rheumatoid arthritis
     Dosage: MORE DOSAGE INFORMATION: 162MG/0.9ML INTO HER LEG
     Route: 058
     Dates: start: 20221115, end: 202309
  2. ACTEMRA [Suspect]
     Active Substance: TOCILIZUMAB

REACTIONS (7)
  - Fungal infection [Recovered/Resolved]
  - Limb injury [Recovered/Resolved]
  - Illness [Recovered/Resolved]
  - Impaired healing [Recovered/Resolved]
  - Fungal infection [Recovered/Resolved]
  - Fall [Unknown]
  - Central nervous system vasculitis [Unknown]

NARRATIVE: CASE EVENT DATE: 20230101
